FAERS Safety Report 14573534 (Version 2)
Quarter: 2018Q2

REPORT INFORMATION
  Report Type: Spontaneous
  Country: FR (occurrence: FR)
  Receive Date: 20180226
  Receipt Date: 20180607
  Transmission Date: 20180711
  Serious: No
  Sender: FDA-Public Use
  Company Number: FR-009507513-1802FRA009750

PATIENT
  Sex: Female

DRUGS (1)
  1. SINEMET [Suspect]
     Active Substance: CARBIDOPA\LEVODOPA
     Dosage: STRENGTH: 100/10
     Route: 048

REACTIONS (2)
  - Product availability issue [Unknown]
  - Arthropathy [Unknown]

NARRATIVE: CASE EVENT DATE: 201802
